FAERS Safety Report 9884658 (Version 1)
Quarter: 2014Q1

REPORT INFORMATION
  Report Type: Spontaneous
  Country: US (occurrence: US)
  Receive Date: 20140210
  Receipt Date: 20140210
  Transmission Date: 20141002
  Serious: No
  Sender: FDA-Public Use
  Company Number: US-ALLERGAN-1317932US

PATIENT
  Sex: Female

DRUGS (1)
  1. BOTOX [Suspect]
     Indication: TORTICOLLIS
     Dosage: UNK, SINGLE
     Route: 030
     Dates: start: 20130919, end: 20130919

REACTIONS (1)
  - Dyspnoea [Recovered/Resolved]
